FAERS Safety Report 20337335 (Version 3)
Quarter: 2022Q3

REPORT INFORMATION
  Report Type: Spontaneous
  Country: US (occurrence: US)
  Receive Date: 20220114
  Receipt Date: 20220916
  Transmission Date: 20221027
  Serious: No
  Sender: FDA-Public Use
  Company Number: US-SA-SAC20220107000776

PATIENT
  Age: 30 Year
  Sex: Male

DRUGS (2)
  1. FABRAZYME [Suspect]
     Active Substance: AGALSIDASE BETA
     Indication: Fabry^s disease
     Dosage: 65 MG, QOW
     Route: 042
     Dates: start: 2021
  2. FABRAZYME [Suspect]
     Active Substance: AGALSIDASE BETA
     Dosage: 65 MG, QOW
     Route: 042
     Dates: start: 20220105

REACTIONS (7)
  - Renal disorder [Unknown]
  - Proteinuria [Unknown]
  - Diplopia [Unknown]
  - Burning sensation [Recovered/Resolved]
  - Oedema peripheral [Unknown]
  - Paraesthesia [Recovered/Resolved]
  - Rehabilitation therapy [Not Recovered/Not Resolved]
